FAERS Safety Report 21653907 (Version 1)
Quarter: 2022Q4

REPORT INFORMATION
  Report Type: Report from Study
  Country: US (occurrence: US)
  Receive Date: 20221129
  Receipt Date: 20221129
  Transmission Date: 20230112
  Serious: No
  Sender: FDA-Public Use
  Company Number: US-ABBVIE-4179612

PATIENT
  Sex: Male

DRUGS (2)
  1. DUOPA [Suspect]
     Active Substance: CARBIDOPA\LEVODOPA
     Indication: Product used for unknown indication
     Dosage: ROUTE OF ADMINISTRATION: PERCUTANEOUS J-TUBE
     Dates: start: 20220818
  2. DUOPA [Suspect]
     Active Substance: CARBIDOPA\LEVODOPA

REACTIONS (5)
  - Hypophagia [Unknown]
  - Device use error [Unknown]
  - Fluid intake reduced [Unknown]
  - Mania [Unknown]
  - Device occlusion [Not Recovered/Not Resolved]
